FAERS Safety Report 8757480 (Version 2)
Quarter: 2012Q4

REPORT INFORMATION
  Report Type: 
  Country: US (occurrence: US)
  Receive Date: 20120828
  Receipt Date: 20120917
  Transmission Date: 20130627
  Serious: Yes (Hospitalization)
  Sender: FDA-Public Use
  Company Number: US-US-EMD SERONO, INC.-7156244

PATIENT
  Sex: Female

DRUGS (4)
  1. REBIF [Suspect]
     Indication: MULTIPLE SCLEROSIS
     Route: 058
     Dates: start: 20050504, end: 201208
  2. REBIF [Suspect]
     Route: 058
  3. ATENOLOL [Concomitant]
     Indication: HYPERTENSION
  4. HYDRALAZINE [Concomitant]
     Indication: HYPERTENSION

REACTIONS (5)
  - Urinary tract infection [Recovering/Resolving]
  - Lower limb fracture [Recovered/Resolved]
  - Back disorder [Recovered/Resolved]
  - Fall [Recovering/Resolving]
  - Visual impairment [Unknown]
